FAERS Safety Report 7427964-6 (Version None)
Quarter: 2011Q2

REPORT INFORMATION
  Report Type: 
  Country: None (occurrence: None)
  Receive Date: 20110421
  Receipt Date: 20110318
  Transmission Date: 20111010
  Serious: Yes (Hospitalization, Other)
  Sender: FDA-Public Use
  Company Number: US-BAYER-201041317NA

PATIENT
  Age: 39 Year
  Sex: Female
  Weight: 90.703 kg

DRUGS (7)
  1. YASMIN [Suspect]
     Indication: PRODUCT USED FOR UNKNOWN INDICATION
  2. CYMBALTA [Concomitant]
  3. RAMIPRIL [Concomitant]
     Dosage: UNK
     Dates: start: 20100101
  4. CRESTOR [Concomitant]
     Indication: BLOOD CHOLESTEROL INCREASED
     Dosage: 40 MG, UNK
  5. CYMBALTA [Concomitant]
     Dosage: 60 MG, DAILY
  6. YASMIN [Suspect]
  7. DROSPIRENONE + ETHINYLESTRADIOL 20?G (24+4) [Suspect]
     Indication: PREMENSTRUAL SYNDROME
     Dosage: UNK
     Dates: start: 20090929, end: 20100109

REACTIONS (5)
  - DEPRESSION [None]
  - BIPOLAR DISORDER [None]
  - HEART INJURY [None]
  - MYOCARDIAL INFARCTION [None]
  - CARDIAC DISORDER [None]
